FAERS Safety Report 24445686 (Version 2)
Quarter: 2024Q4

REPORT INFORMATION
  Report Type: Spontaneous
  Country: US (occurrence: US)
  Receive Date: 20241016
  Receipt Date: 20241022
  Transmission Date: 20250115
  Serious: No
  Sender: PFIZER
  Company Number: US-PFIZER INC-202400275754

PATIENT
  Sex: Female

DRUGS (1)
  1. QUINAPRIL [Suspect]
     Active Substance: QUINAPRIL
     Indication: Hypertension
     Dosage: UNK

REACTIONS (1)
  - Cough [Recovered/Resolved]
